FAERS Safety Report 9280047 (Version 1)
Quarter: 2013Q2

REPORT INFORMATION
  Report Type: Spontaneous
  Country: US (occurrence: None)
  Receive Date: 20130507
  Receipt Date: 20130507
  Transmission Date: 20140414
  Serious: No
  Sender: FDA-Public Use
  Company Number: None

PATIENT
  Age: 25 Year
  Sex: Female
  Weight: 44.9 kg

DRUGS (1)
  1. IMMUNE GLOBULIN [Suspect]
     Indication: CHRONIC INFLAMMATORY DEMYELINATING POLYRADICULONEUROPATHY
     Route: 041
     Dates: start: 20120709, end: 20120709

REACTIONS (4)
  - Pruritus [None]
  - Rash [None]
  - Pyrexia [None]
  - Tachycardia [None]
